FAERS Safety Report 25264116 (Version 2)
Quarter: 2025Q2

REPORT INFORMATION
  Report Type: Spontaneous
  Country: US (occurrence: US)
  Receive Date: 20250502
  Receipt Date: 20250515
  Transmission Date: 20250717
  Serious: No
  Sender: ABBVIE
  Company Number: US-ABBVIE-6250593

PATIENT
  Age: 56 Year
  Sex: Female
  Weight: 68 kg

DRUGS (3)
  1. BOTOX [Suspect]
     Active Substance: ONABOTULINUMTOXINA
     Indication: Migraine
     Route: 065
  2. BOTOX [Suspect]
     Active Substance: ONABOTULINUMTOXINA
     Indication: Migraine
     Route: 030
     Dates: start: 20250226, end: 20250226
  3. AMBIEN [Concomitant]
     Active Substance: ZOLPIDEM TARTRATE
     Indication: Sleep disorder

REACTIONS (4)
  - Impaired work ability [Not Recovered/Not Resolved]
  - Migraine [Not Recovered/Not Resolved]
  - Drug ineffective [Not Recovered/Not Resolved]
  - Fatigue [Not Recovered/Not Resolved]

NARRATIVE: CASE EVENT DATE: 20250201
